FAERS Safety Report 8437459-9 (Version None)
Quarter: 2012Q2

REPORT INFORMATION
  Report Type: 
  Country: None (occurrence: None)
  Receive Date: 20120614
  Receipt Date: 20120327
  Transmission Date: 20120825
  Serious: No
  Sender: FDA-Public Use
  Company Number: US-AMGEN-USASP2012019512

PATIENT
  Age: 79 Year
  Sex: Female

DRUGS (1)
  1. PROLIA [Suspect]
     Indication: OSTEOPOROSIS POSTMENOPAUSAL
     Dosage: UNK
     Dates: start: 20110301

REACTIONS (13)
  - JOINT RANGE OF MOTION DECREASED [None]
  - PRURITUS [None]
  - MUSCLE SPASMS [None]
  - URINARY TRACT INFECTION [None]
  - COUGH [None]
  - ACTIVITIES OF DAILY LIVING IMPAIRED [None]
  - PYREXIA [None]
  - NECK PAIN [None]
  - CHILLS [None]
  - ANXIETY [None]
  - RASH ERYTHEMATOUS [None]
  - DRY SKIN [None]
  - BACK PAIN [None]
